FAERS Safety Report 10086174 (Version 1)
Quarter: 2014Q2

REPORT INFORMATION
  Report Type: Spontaneous
  Country: US (occurrence: US)
  Receive Date: 20140418
  Receipt Date: 20140418
  Transmission Date: 20141212
  Serious: Yes (Other)
  Sender: FDA-Public Use
  Company Number: ALCN2014US002432

PATIENT
  Age: 54 Year
  Sex: Male

DRUGS (10)
  1. PREDNISOLONE ACETATE [Suspect]
     Dosage: 1 DF, QID
     Route: 047
  2. ATROPINE 1% [Suspect]
     Route: 061
  3. DUREZOL [Suspect]
     Dosage: 1 GTT, QH
  4. DUREZOL [Suspect]
     Dosage: 1 GTT, Q2H
     Route: 047
  5. DUREZOL [Suspect]
     Dosage: 1 DF, QID
     Route: 047
  6. PHENYLEPHRINE HCL [Suspect]
     Dosage: 1 DF, QID
     Route: 047
  7. VIGAMOX [Suspect]
     Route: 047
  8. PREDNISONE [Concomitant]
     Dosage: 60 MG, QD
     Route: 048
  9. PREDNISONE [Concomitant]
     Dosage: 20 MG, QD
     Route: 048
  10. PREDNISONE [Concomitant]
     Dosage: 10 MG, QW

REACTIONS (7)
  - Flat anterior chamber of eye [Recovered/Resolved]
  - Choroidal effusion [Recovered/Resolved with Sequelae]
  - Corneal epithelium defect [Recovered/Resolved]
  - Corneal disorder [Recovered/Resolved]
  - Anterior chamber fibrin [Recovered/Resolved]
  - Iris adhesions [Recovered/Resolved]
  - Corneal oedema [Recovered/Resolved]
